FAERS Safety Report 11510944 (Version 1)
Quarter: 2015Q3

REPORT INFORMATION
  Report Type: Report from Study
  Country: IN (occurrence: IN)
  Receive Date: 20150915
  Receipt Date: 20150915
  Transmission Date: 20151125
  Serious: Yes (Death)
  Sender: FDA-Public Use
  Company Number: PHHY2015IN110531

PATIENT
  Age: 22 Year
  Sex: Male

DRUGS (2)
  1. MYFORTIC [Suspect]
     Active Substance: MYCOPHENOLATE SODIUM
     Indication: IMMUNOSUPPRESSION
     Dosage: 360 MG, BID
     Route: 048
     Dates: start: 201005, end: 201501
  2. TACSANT [Suspect]
     Active Substance: TACROLIMUS
     Indication: IMMUNOSUPPRESSION
     Dosage: 1.5 MG IN MORNING (OR) 1 MG IN EVENING
     Route: 048
     Dates: start: 201005, end: 201501

REACTIONS (2)
  - Infection [Fatal]
  - Blindness [Fatal]

NARRATIVE: CASE EVENT DATE: 201005
